FAERS Safety Report 16744780 (Version 1)
Quarter: 2019Q3

REPORT INFORMATION
  Report Type: Spontaneous
  Country: KR (occurrence: KR)
  Receive Date: 20190827
  Receipt Date: 20190827
  Transmission Date: 20191005
  Serious: Yes (Other)
  Sender: FDA-Public Use
  Company Number: KR-ASTRAZENECA-2019SF20208

PATIENT
  Sex: Male

DRUGS (6)
  1. GEFITINIB. [Suspect]
     Active Substance: GEFITINIB
     Route: 048
  2. DOCETAXEL. [Concomitant]
     Active Substance: DOCETAXEL
  3. ERLOTINIB [Concomitant]
     Active Substance: ERLOTINIB
  4. PEMETREXED. [Concomitant]
     Active Substance: PEMETREXED
  5. PEMBROLIZUMAB. [Concomitant]
     Active Substance: PEMBROLIZUMAB
  6. OSIMERTINIB. [Suspect]
     Active Substance: OSIMERTINIB
     Route: 048

REACTIONS (1)
  - Malignant neoplasm progression [Unknown]
